FAERS Safety Report 6390112-8 (Version None)
Quarter: 2009Q4

REPORT INFORMATION
  Report Type: 
  Country: None (occurrence: None)
  Receive Date: 20091006
  Receipt Date: 20090928
  Transmission Date: 20100525
  Serious: Yes (Other)
  Sender: FDA-Public Use
  Company Number: US-JNJFOC-20061006074

PATIENT
  Sex: Male
  Weight: 107.96 kg

DRUGS (1)
  1. RISPERDAL [Suspect]
     Indication: ANXIETY
     Route: 048

REACTIONS (2)
  - TYPE 1 DIABETES MELLITUS [None]
  - WEIGHT INCREASED [None]
